FAERS Safety Report 5257133-X (Version None)
Quarter: 2007Q1

REPORT INFORMATION
  Report Type: 
  Country: None (occurrence: None)
  Receive Date: 20070307
  Receipt Date: 20070222
  Transmission Date: 20070707
  Serious: Yes (Other)
  Sender: FDA-Public Use
  Company Number: PHBS2007BR03458

PATIENT
  Age: 60 Year
  Sex: Female

DRUGS (2)
  1. TOFRANIL [Suspect]
     Indication: DEPRESSION
     Dosage: 25 MG/D
     Route: 048
     Dates: start: 20000101, end: 20050101
  2. TOFRANIL [Suspect]
     Dosage: 50 MG, QD
     Route: 048
     Dates: start: 20050101

REACTIONS (4)
  - ABDOMINAL PAIN UPPER [None]
  - BLOOD BILIRUBIN ABNORMAL [None]
  - DRUG DEPENDENCE [None]
  - LIVER DISORDER [None]
